FAERS Safety Report 4463522-3 (Version None)
Quarter: 2004Q3

REPORT INFORMATION
  Report Type: 
  Country: None (occurrence: None)
  Receive Date: 20040928
  Receipt Date: 20040920
  Transmission Date: 20050211
  Serious: Yes (Hospitalization, Other)
  Sender: FDA-Public Use
  Company Number: FRWYE051120SEP04

PATIENT
  Age: 27 Year
  Sex: Female

DRUGS (6)
  1. TAZOCILLINE (PIPERACILLIN/TAZOBACTAM, INJECTION) [Suspect]
     Indication: WOUND INFECTION PSEUDOMONAS
     Dosage: 4 G 3X PER 1 DAY INTRAVENOUS
     Route: 042
     Dates: start: 20040806, end: 20040824
  2. CIFLOX (CIPROFLOXACIN,  0) [Suspect]
     Dosage: 500 MG 3X PER 1 DAY INTRAVENOUS
     Route: 042
     Dates: start: 20040804, end: 20040824
  3. CLAMOXYL (AMOXICILLIN SODIUM, INJECTION, 0) [Suspect]
     Dosage: 5 G 3X PER 1 DAY INTRAVENOUS
     Route: 042
     Dates: start: 20040804, end: 20040818
  4. KETOPROFEN [Suspect]
     Dosage: 1 DOSE 2X PER 1 DAY ORAL
     Route: 048
     Dates: start: 20040804, end: 20040824
  5. OMEPRAZOLE [Suspect]
     Dosage: 1 DOSE 2X PER 1 DAY ORAL
     Route: 048
     Dates: start: 20040804, end: 20040824
  6. PARACETAMOL (PARACETAMOL, , 0) [Suspect]
     Dosage: 1 G 3X PER 1 DAY INTRAVENOUS
     Route: 042
     Dates: start: 20040804, end: 20040824

REACTIONS (4)
  - HEPATITIS [None]
  - INFLUENZA LIKE ILLNESS [None]
  - NEUTROPENIA [None]
  - RASH [None]
